FAERS Safety Report 7086275-1 (Version None)
Quarter: 2010Q4

REPORT INFORMATION
  Report Type: 
  Country: None (occurrence: None)
  Receive Date: 20101105
  Receipt Date: 20101027
  Transmission Date: 20110411
  Serious: Yes (Other)
  Sender: FDA-Public Use
  Company Number: GB-PURDUE-GBR-2010-0007264

PATIENT
  Age: 87 Year
  Sex: Female

DRUGS (25)
  1. BUTRANS 5MG TRANSDERMAL PATCH [Suspect]
     Dosage: 5 MCG, Q1H
     Route: 065
  2. BUPRENORPHINE [Concomitant]
     Indication: OSTEOARTHRITIS
     Dosage: 5 MCG, Q1H
     Route: 062
     Dates: start: 20100922, end: 20100928
  3. BUPRENORPHINE [Concomitant]
     Indication: PAIN
  4. DILTIAZEM HCL [Concomitant]
     Indication: ESSENTIAL HYPERTENSION
     Dosage: 60 MG, BID
  5. AMITRIPTYLINE HCL [Concomitant]
     Dosage: 10 MG, DAILY
  6. ANTIEMETICS AND ANTINAUSEANTS [Concomitant]
  7. BECONASE [Concomitant]
     Indication: HYPERSENSITIVITY
     Dosage: 100 MCG, BID
     Route: 045
  8. BENDROFLUMETHIAZIDE [Concomitant]
     Indication: BLOOD PRESSURE
     Dosage: 2.5 MG, DAILY
  9. BENDROFLUMETHIAZIDE [Concomitant]
     Indication: TRANSIENT ISCHAEMIC ATTACK
  10. CALCIUM CARBONATE [Concomitant]
     Indication: OSTEOPOROSIS
     Dosage: 1.25 G, BID
  11. COLECALCIFEROL [Concomitant]
     Indication: OSTEOPOROSIS
     Dosage: 400 IU, BID
  12. GLYCERYL TRINITRATE [Concomitant]
     Indication: ANGINA PECTORIS
     Dosage: 400 MCG, PRN
  13. HYDROCORTISONE ACETATE [Concomitant]
     Dosage: 25 MG, UNK
  14. LIDOCAINE HYDROCHLORIDE [Concomitant]
     Dosage: 1 %, UNK
  15. LISINOPRIL [Concomitant]
     Indication: ESSENTIAL HYPERTENSION
     Dosage: 5 MG, DAILY
  16. NAPROXEN [Concomitant]
     Indication: INFLAMMATION
     Dosage: 250 MG, TID
  17. NAPROXEN [Concomitant]
     Indication: OSTEOARTHRITIS
  18. NAPROXEN [Concomitant]
     Indication: PAIN
  19. OMEPRAZOLE [Concomitant]
     Indication: DYSPEPSIA
     Dosage: 20 MG, DAILY
  20. OPTIVE [Concomitant]
     Indication: EYE PAIN
     Dosage: 0.5 %, UNK
  21. PARACETAMOL [Concomitant]
     Dosage: 1000 MG, QID
  22. PREGABALIN [Concomitant]
     Indication: NEURALGIA
  23. PROCHLORPERAZINE [Concomitant]
     Indication: NAUSEA
     Dosage: 5 MG, TID
  24. RISEDRONATE SODIUM [Concomitant]
     Indication: OSTEOPOROSIS
     Dosage: 35 MG, 1/WEEK
  25. TRAMADOL HCL [Concomitant]
     Dosage: 37.5 MG, PRN

REACTIONS (3)
  - DYSPNOEA [None]
  - INCREASED UPPER AIRWAY SECRETION [None]
  - UPPER RESPIRATORY TRACT CONGESTION [None]
